FAERS Safety Report 7712388-4 (Version None)
Quarter: 2011Q3

REPORT INFORMATION
  Report Type: 
  Country: None (occurrence: None)
  Receive Date: 20110826
  Receipt Date: 20110817
  Transmission Date: 20111222
  Serious: Yes (Other)
  Sender: FDA-Public Use
  Company Number: JP-ROCHE-798343

PATIENT
  Age: 75 Year
  Sex: Male

DRUGS (4)
  1. CISPLATIN [Suspect]
     Indication: PROPHYLAXIS OF NAUSEA AND VOMITING
     Route: 042
     Dates: start: 20080731
  2. KYTRIL [Suspect]
     Indication: PROPHYLAXIS OF NAUSEA AND VOMITING
     Route: 042
     Dates: start: 20080731
  3. FLUOROURACIL [Suspect]
     Indication: PROPHYLAXIS OF NAUSEA AND VOMITING
     Dosage: DOSAGE IS UNCERTAIN
     Route: 065
     Dates: start: 20080731
  4. DECADRON [Suspect]
     Indication: PROPHYLAXIS OF NAUSEA AND VOMITING
     Route: 042
     Dates: start: 20080731

REACTIONS (7)
  - NAUSEA [None]
  - VOMITING [None]
  - CONSTIPATION [None]
  - HYPONATRAEMIA [None]
  - FATIGUE [None]
  - HYPERTENSION [None]
  - HICCUPS [None]
